FAERS Safety Report 9672044 (Version 1)
Quarter: 2013Q4

REPORT INFORMATION
  Report Type: Spontaneous
  Country: BA (occurrence: BA)
  Receive Date: 20131106
  Receipt Date: 20131106
  Transmission Date: 20140711
  Serious: Yes (Hospitalization)
  Sender: FDA-Public Use
  Company Number: BA-GLAXOSMITHKLINE-B0939583A

PATIENT
  Sex: 0

DRUGS (2)
  1. SEROXAT [Suspect]
     Indication: PRODUCT USED FOR UNKNOWN INDICATION
     Dosage: 20MG PER DAY
     Route: 064
  2. ANTIBIOTICS [Concomitant]

REACTIONS (4)
  - Jaundice neonatal [Unknown]
  - Exposure during breast feeding [Unknown]
  - Somnolence [Unknown]
  - Foetal exposure during pregnancy [Unknown]
